FAERS Safety Report 19111347 (Version 1)
Quarter: 2021Q2

REPORT INFORMATION
  Report Type: Spontaneous
  Country: US (occurrence: US)
  Receive Date: 20210408
  Receipt Date: 20210408
  Transmission Date: 20210717
  Serious: No
  Sender: FDA-Public Use
  Company Number: None

PATIENT
  Age: 43 Year
  Sex: Female
  Weight: 106.2 kg

DRUGS (6)
  1. AMLODIPINE [Concomitant]
     Active Substance: AMLODIPINE BESYLATE
  2. KRISTALOSE [Suspect]
     Active Substance: LACTULOSE
     Indication: CONSTIPATION
     Dosage: ?          QUANTITY:1 PACKET;?
     Route: 048
     Dates: start: 20210315, end: 20210315
  3. NASONEX [Concomitant]
     Active Substance: MOMETASONE FUROATE
  4. PEPCID [Concomitant]
     Active Substance: FAMOTIDINE
  5. ZYRTEC [Concomitant]
     Active Substance: CETIRIZINE HYDROCHLORIDE
  6. VITAMIN D3 SUPPLEMENT [Concomitant]

REACTIONS (7)
  - Throat irritation [None]
  - Nausea [None]
  - Constipation [None]
  - Hypersensitivity [None]
  - Gastritis [None]
  - Gastrooesophageal reflux disease [None]
  - Pruritus [None]

NARRATIVE: CASE EVENT DATE: 20210316
